FAERS Safety Report 5475675-9 (Version None)
Quarter: 2007Q4

REPORT INFORMATION
  Report Type: 
  Country: None (occurrence: None)
  Receive Date: 20071003
  Receipt Date: 20070924
  Transmission Date: 20080405
  Serious: Yes (Hospitalization)
  Sender: FDA-Public Use
  Company Number: US-ASTRAZENECA-2007UW21539

PATIENT
  Age: 22911 Day
  Sex: Female
  Weight: 64.9 kg

DRUGS (15)
  1. IRESSA [Suspect]
     Indication: SQUAMOUS CELL CARCINOMA
     Route: 048
     Dates: start: 20070417, end: 20070904
  2. VALIUM [Concomitant]
     Dosage: 5 MG IN AM, 2.5 MG IN AFTERNOON, 2.5 MG AT NIGHT
  3. COZAAR [Concomitant]
  4. ACTONEL [Concomitant]
  5. PRAVACHOL [Concomitant]
  6. LEXAPRO [Concomitant]
  7. FENTANYL [Concomitant]
  8. FOLATE [Concomitant]
  9. SUPER B COMPLEX [Concomitant]
  10. ALLEGRA [Concomitant]
  11. LIDOCAINE [Concomitant]
  12. BENADRYL TOPICAL SPRAY [Concomitant]
  13. CENTRUM CALCIUM [Concomitant]
  14. VICODIN [Concomitant]
  15. GRADE I MOUTHWASH [Concomitant]

REACTIONS (1)
  - PHARYNGEAL HAEMORRHAGE [None]
